FAERS Safety Report 6304997-4 (Version None)
Quarter: 2009Q3

REPORT INFORMATION
  Report Type: 
  Country: None (occurrence: None)
  Receive Date: 20090806
  Receipt Date: 20090520
  Transmission Date: 20100115
  Serious: Yes (Other)
  Sender: FDA-Public Use
  Company Number: 2009050072

PATIENT
  Age: 35 Year
  Sex: Female

DRUGS (5)
  1. ASTEPRO [Suspect]
     Dosage: 1096 MCG (548 MCG, 2 IN 1 D), IN
     Dates: start: 20090301, end: 20090501
  2. ALLEGRA [Concomitant]
  3. RED CLOVER [Concomitant]
  4. MILK THISTLE [Concomitant]
  5. GLUCOSAMINE (GLUCOSAMINE) [Concomitant]

REACTIONS (2)
  - HYPOAESTHESIA [None]
  - PARAESTHESIA [None]
